FAERS Safety Report 8154432-9 (Version None)
Quarter: 2012Q1

REPORT INFORMATION
  Report Type: 
  Country: None (occurrence: None)
  Receive Date: 20120103
  Receipt Date: 20111027
  Transmission Date: 20120608
  Serious: No
  Sender: FDA-Public Use
  Company Number: AE-2011-002762

PATIENT
  Age: 43 Year
  Sex: Male
  Weight: 127.0072 kg

DRUGS (5)
  1. ANTIDEPRESSANTS (UNSPECIFIED) (ANTIDEPRESSANTS) [Concomitant]
  2. RIBAVIRIN [Concomitant]
  3. PEGASYS [Concomitant]
  4. INCIVEK [Suspect]
     Dosage: 2250 MG (750 MG, 1 IN 8 HR), ORAL
     Route: 048
     Dates: start: 20111020
  5. ANTICONVULSANTS (UNSPECIFIED) (ANTIEPILEPTICS) [Concomitant]

REACTIONS (3)
  - NAUSEA [None]
  - MALAISE [None]
  - VOMITING [None]
